FAERS Safety Report 23301283 (Version 6)
Quarter: 2025Q2

REPORT INFORMATION
  Report Type: Report from Study
  Country: CA (occurrence: CA)
  Receive Date: 20231215
  Receipt Date: 20250616
  Transmission Date: 20250717
  Serious: Yes (Other)
  Sender: TAKEDA
  Company Number: CA-TAKEDA-2023TUS057869

PATIENT
  Sex: Female

DRUGS (2)
  1. IXAZOMIB [Suspect]
     Active Substance: IXAZOMIB
     Indication: Plasma cell myeloma
  2. IXAZOMIB [Suspect]
     Active Substance: IXAZOMIB

REACTIONS (11)
  - Cytopenia [Unknown]
  - Hepatic enzyme abnormal [Recovering/Resolving]
  - Blood test abnormal [Unknown]
  - Protein urine present [Unknown]
  - Off label use [Unknown]
  - Asthenia [Unknown]
  - Dry eye [Unknown]
  - Hepatic enzyme increased [Unknown]
  - Vomiting [Unknown]
  - Diarrhoea [Unknown]
  - Nausea [Unknown]
